FAERS Safety Report 24678486 (Version 1)
Quarter: 2024Q4

REPORT INFORMATION
  Report Type: Other
  Country: FR (occurrence: FR)
  Receive Date: 20241129
  Receipt Date: 20241129
  Transmission Date: 20250115
  Serious: Yes (Death, Congenital Anomaly, Other)
  Sender: MACLEODS
  Company Number: FR-MACLEODS PHARMA-MAC2024050424

PATIENT

DRUGS (4)
  1. TENOFOVIR DISOPROXIL [Suspect]
     Active Substance: TENOFOVIR DISOPROXIL
     Indication: Product used for unknown indication
     Dosage: NUMBER OF COURSES: 2, EXPOSED TO SECOND TRIMESTER
     Route: 065
     Dates: start: 20231110, end: 20240202
  2. EMTRICITABINE [Suspect]
     Active Substance: EMTRICITABINE
     Indication: Product used for unknown indication
     Dosage: 1 TABS/CAPS, NUMBER OF COURSE: 1, EXPOSED TO SECOND TRIMESTER
     Route: 065
     Dates: start: 20231110, end: 20240202
  3. TIVICAY [Suspect]
     Active Substance: DOLUTEGRAVIR SODIUM
     Indication: Product used for unknown indication
     Dosage: 1 TAB/CAPS
     Route: 065
     Dates: start: 20231110, end: 20240202
  4. DOVATO [Suspect]
     Active Substance: DOLUTEGRAVIR SODIUM\LAMIVUDINE
     Indication: Product used for unknown indication
     Dosage: 1 TABS/CAPS
     Route: 065
     Dates: start: 20240202, end: 20240419

REACTIONS (2)
  - Foetal death [Fatal]
  - Foetal exposure during pregnancy [Unknown]
